FAERS Safety Report 5238680-3 (Version None)
Quarter: 2007Q1

REPORT INFORMATION
  Report Type: 
  Country: None (occurrence: None)
  Receive Date: 20070215
  Receipt Date: 20070205
  Transmission Date: 20070707
  Serious: Yes (Death)
  Sender: FDA-Public Use
  Company Number: US-ELI_LILLY_AND_COMPANY-US200702001707

PATIENT
  Age: 39 Year
  Sex: Female

DRUGS (3)
  1. CYMBALTA [Suspect]
     Indication: DEPRESSION
     Dosage: 60 MG, UNK
     Route: 048
     Dates: start: 20070110
  2. AMBIEN [Concomitant]
     Dosage: UNK, UNK
     Dates: start: 20070110
  3. LODRANE [Concomitant]
     Dosage: UNK, UNK
     Dates: start: 20070110

REACTIONS (2)
  - DEATH [None]
  - OVERDOSE [None]
